FAERS Safety Report 7706827-2 (Version None)
Quarter: 2011Q3

REPORT INFORMATION
  Report Type: 
  Country: None (occurrence: None)
  Receive Date: 20110818
  Receipt Date: 20110802
  Transmission Date: 20111222
  Serious: Yes (Hospitalization)
  Sender: FDA-Public Use
  Company Number: B0737948A

PATIENT
  Age: 55 Year
  Sex: Male

DRUGS (3)
  1. ACYCLOVIR [Suspect]
     Indication: TRANSPLANT REJECTION
     Dosage: 400 MG TWICE PER DAY, ORAL
     Route: 048
  2. STEROID [Concomitant]
  3. MYCOPHENOLATE MOFETIL [Suspect]
     Indication: TRANSPLANT REJECTION
     Dosage: 1000 MG TWICE PER DAY

REACTIONS (4)
  - LOSS OF CONSCIOUSNESS [None]
  - GRAND MAL CONVULSION [None]
  - HYPERTENSION [None]
  - NEUROTOXICITY [None]
